FAERS Safety Report 16791002 (Version 1)
Quarter: 2019Q3

REPORT INFORMATION
  Report Type: Spontaneous
  Country: US (occurrence: US)
  Receive Date: 20190910
  Receipt Date: 20190910
  Transmission Date: 20191005
  Serious: Yes (Other)
  Sender: FDA-Public Use
  Company Number: US-PFIZER INC-2019387767

PATIENT
  Age: 51 Year
  Sex: Female
  Weight: 73 kg

DRUGS (3)
  1. ZITHROMAX [Suspect]
     Active Substance: AZITHROMYCIN DIHYDRATE
     Indication: PAIN
     Dosage: 300 MG, UNK
  2. BIAXIN [Suspect]
     Active Substance: CLARITHROMYCIN
     Dosage: UNK
  3. GABAPENTIN. [Suspect]
     Active Substance: GABAPENTIN
     Dosage: 1100 MG, 3X/DAY (EVREY 8 HOURS)

REACTIONS (8)
  - Musculoskeletal discomfort [Unknown]
  - Drug ineffective [Unknown]
  - Intervertebral disc compression [Unknown]
  - Urticaria [Unknown]
  - Musculoskeletal pain [Unknown]
  - Spinal cord compression [Unknown]
  - Drug hypersensitivity [Unknown]
  - Vertebral foraminal stenosis [Unknown]
